FAERS Safety Report 10588051 (Version 2)
Quarter: 2014Q4

REPORT INFORMATION
  Report Type: Spontaneous
  Country: BR (occurrence: BR)
  Receive Date: 20141117
  Receipt Date: 20141125
  Transmission Date: 20150529
  Serious: Yes (Death, Hospitalization)
  Sender: FDA-Public Use
  Company Number: BR-PFIZER INC-2014314959

PATIENT
  Age: 73 Year
  Sex: Female
  Weight: 55 kg

DRUGS (2)
  1. CODEIN [Concomitant]
     Active Substance: CODEINE
     Indication: PAIN
     Dosage: UNK
  2. CELEBRA [Suspect]
     Active Substance: CELECOXIB
     Indication: SPINAL PAIN
     Dosage: 200 MG (1 CAPSULE), 2X/DAY
     Route: 048
     Dates: start: 20111009

REACTIONS (2)
  - Intestinal obstruction [Not Recovered/Not Resolved]
  - Nosocomial infection [Fatal]

NARRATIVE: CASE EVENT DATE: 201112
